FAERS Safety Report 8420970-4 (Version None)
Quarter: 2012Q2

REPORT INFORMATION
  Report Type: 
  Country: None (occurrence: None)
  Receive Date: 20120608
  Receipt Date: 20120606
  Transmission Date: 20120825
  Serious: Yes (Hospitalization)
  Sender: FDA-Public Use
  Company Number: IL-PFIZER INC-2012136714

PATIENT
  Age: 62 Year
  Sex: Female

DRUGS (1)
  1. VARENICLINE TARTRATE [Suspect]
     Indication: SMOKING CESSATION THERAPY
     Dosage: UNK MG, 2X/DAY (2MG, DAILY)
     Route: 048

REACTIONS (3)
  - ASTHENIA [None]
  - DEHYDRATION [None]
  - FEELING ABNORMAL [None]
